FAERS Safety Report 7127973-0 (Version None)
Quarter: 2010Q4

REPORT INFORMATION
  Report Type: 
  Country: None (occurrence: None)
  Receive Date: 20101112
  Receipt Date: 20101028
  Transmission Date: 20110411
  Serious: Yes (Disabling, Other)
  Sender: FDA-Public Use
  Company Number: ACO_20099_2010

PATIENT
  Age: 62 Year
  Sex: Male

DRUGS (10)
  1. AMPYRA [Suspect]
     Indication: GAIT DISTURBANCE
     Dosage: 10MG, QD, ORAL ; 20MG Q12H, ORAL
     Route: 048
     Dates: start: 20100722, end: 20100725
  2. AMPYRA [Suspect]
     Indication: MULTIPLE SCLEROSIS
     Dosage: 10MG, QD, ORAL ; 20MG Q12H, ORAL
     Route: 048
     Dates: start: 20100722, end: 20100725
  3. AMPYRA [Suspect]
     Indication: GAIT DISTURBANCE
     Dosage: 10MG, QD, ORAL ; 20MG Q12H, ORAL
     Route: 048
     Dates: start: 20100726
  4. AMPYRA [Suspect]
     Indication: MULTIPLE SCLEROSIS
     Dosage: 10MG, QD, ORAL ; 20MG Q12H, ORAL
     Route: 048
     Dates: start: 20100726
  5. LEXAPRO [Concomitant]
  6. AMANTADINE HCL [Concomitant]
  7. BACLOFEN [Concomitant]
  8. REBIF [Concomitant]
  9. ACETAMINOPHEN [Concomitant]
  10. SOLU-MEDROL [Concomitant]

REACTIONS (7)
  - ACTIVITIES OF DAILY LIVING IMPAIRED [None]
  - ASTHENIA [None]
  - CYSTITIS [None]
  - DRUG EFFECT DECREASED [None]
  - FATIGUE [None]
  - INAPPROPRIATE SCHEDULE OF DRUG ADMINISTRATION [None]
  - OVERDOSE [None]
